FAERS Safety Report 9905306 (Version 2)
Quarter: 2014Q1

REPORT INFORMATION
  Report Type: Spontaneous
  Country: US (occurrence: US)
  Receive Date: 20140218
  Receipt Date: 20140218
  Transmission Date: 20141002
  Serious: Yes (Other)
  Sender: FDA-Public Use
  Company Number: US-ASTRAZENECA-2011SE32317

PATIENT
  Age: 65 Year
  Sex: Female
  Weight: 127 kg

DRUGS (8)
  1. NEXIUM [Suspect]
     Indication: DYSPEPSIA
     Route: 048
     Dates: end: 20140208
  2. NEXIUM [Suspect]
     Indication: VARICES OESOPHAGEAL
     Route: 048
     Dates: end: 20140208
  3. NEXIUM [Suspect]
     Indication: GASTROOESOPHAGEAL REFLUX DISEASE
     Route: 048
     Dates: end: 20140208
  4. ZOCOR [Concomitant]
     Indication: BLOOD CHOLESTEROL INCREASED
     Route: 048
  5. METFORMIN [Concomitant]
     Indication: BLOOD GLUCOSE INCREASED
     Dosage: 500 MG AT BREAKFAST AND  1000 MG AT DINNER, DAILY
     Route: 048
  6. ACTOS [Concomitant]
     Indication: BLOOD GLUCOSE ABNORMAL
     Route: 048
  7. APIDRA [Concomitant]
     Indication: BLOOD GLUCOSE ABNORMAL
     Dosage: 19 UNITS AT BREAKFAST AND 21 UNITS AT DINNER, DAILY
     Route: 058
  8. LANTUS [Concomitant]

REACTIONS (18)
  - Large intestine polyp [Unknown]
  - Arthropathy [Unknown]
  - Neck pain [Unknown]
  - Gastrooesophageal reflux disease [Not Recovered/Not Resolved]
  - Dyspepsia [Unknown]
  - Food poisoning [Unknown]
  - Vomiting projectile [Unknown]
  - Hiatus hernia [Unknown]
  - Diabetes mellitus [Unknown]
  - Dyspnoea [Recovering/Resolving]
  - Wheezing [Unknown]
  - Memory impairment [Unknown]
  - Nasal congestion [Unknown]
  - Sinus disorder [Unknown]
  - Apnoea [Unknown]
  - Discomfort [Unknown]
  - Retching [Unknown]
  - Drug dose omission [Unknown]
